FAERS Safety Report 7496404-3 (Version None)
Quarter: 2011Q2

REPORT INFORMATION
  Report Type: 
  Country: None (occurrence: None)
  Receive Date: 20110523
  Receipt Date: 20110509
  Transmission Date: 20111010
  Serious: Yes (Hospitalization)
  Sender: FDA-Public Use
  Company Number: PHHY2011FI39049

PATIENT
  Sex: Female

DRUGS (5)
  1. BURANA [Concomitant]
     Indication: PAIN
     Dosage: 400 MG, (1X1-2)
  2. TAMOFEN [Concomitant]
     Indication: BREAST CANCER
     Dosage: 20 MG, QD
  3. DIAPAM [Concomitant]
     Indication: ANXIETY
     Dosage: 5 MG, (ONE TABLET WHEN NEEDED, MAX 3 TIMES A DAY)
  4. XALATAN [Concomitant]
     Indication: GLAUCOMA
     Dosage: 1 DRP, IN THE EVENING
     Dates: start: 20090101
  5. DORZOLAMIDE HCL AND TIMOLOL MALEATE [Suspect]
     Dosage: 2 DRP, UNK
     Dates: start: 20101101, end: 20110401

REACTIONS (8)
  - FALL [None]
  - HYPOAESTHESIA ORAL [None]
  - VISION BLURRED [None]
  - RHINORRHOEA [None]
  - DIZZINESS [None]
  - DYSPNOEA [None]
  - MUSCLE SPASMS [None]
  - CONCUSSION [None]
